FAERS Safety Report 21474432 (Version 2)
Quarter: 2022Q4

REPORT INFORMATION
  Report Type: Spontaneous
  Country: US (occurrence: US)
  Receive Date: 20221018
  Receipt Date: 20221026
  Transmission Date: 20230113
  Serious: No
  Sender: FDA-Public Use
  Company Number: US-SA-SAC20220206000105

PATIENT
  Age: 50 Year
  Sex: Female

DRUGS (1)
  1. AUBAGIO [Suspect]
     Active Substance: TERIFLUNOMIDE
     Indication: Multiple sclerosis
     Dosage: 14 MG, QD
     Route: 048
     Dates: start: 202111

REACTIONS (6)
  - Tremor [Unknown]
  - Fall [Unknown]
  - Muscle spasticity [Unknown]
  - Mobility decreased [Unknown]
  - Joint injury [Unknown]
  - Memory impairment [Unknown]
